FAERS Safety Report 11798129 (Version 4)
Quarter: 2016Q2

REPORT INFORMATION
  Report Type: Spontaneous
  Country: GB (occurrence: GB)
  Receive Date: 20151203
  Receipt Date: 20160518
  Transmission Date: 20160815
  Serious: Yes (Hospitalization, Other)
  Sender: FDA-Public Use
  Company Number: GB-INCYTE CORPORATION-2015IN006287

PATIENT
  Age: 79 Year
  Sex: Male

DRUGS (2)
  1. TAMSLUSIN [Concomitant]
     Indication: PRODUCT USED FOR UNKNOWN INDICATION
     Dosage: UNK
     Route: 048
     Dates: start: 201206
  2. JAKAFI [Suspect]
     Active Substance: RUXOLITINIB
     Indication: PRIMARY MYELOFIBROSIS
     Dosage: 10 MG, BID
     Route: 048
     Dates: start: 20150602, end: 20151229

REACTIONS (3)
  - Hepatomegaly [Not Recovered/Not Resolved]
  - Jaundice [Unknown]
  - Liver function test increased [Recovered/Resolved]

NARRATIVE: CASE EVENT DATE: 20151110
